FAERS Safety Report 12496452 (Version 1)
Quarter: 2016Q2

REPORT INFORMATION
  Report Type: Spontaneous
  Country: US (occurrence: US)
  Receive Date: 20160624
  Receipt Date: 20160624
  Transmission Date: 20160815
  Serious: No
  Sender: FDA-Public Use
  Company Number: US-GLAXOSMITHKLINE-CHPA2015US009032

PATIENT
  Age: 42 Year
  Sex: Male

DRUGS (1)
  1. PREVACID 24 HR [Suspect]
     Active Substance: LANSOPRAZOLE
     Indication: GASTROOESOPHAGEAL REFLUX DISEASE
     Dosage: 2 DF, QD
     Route: 048
     Dates: start: 2008

REACTIONS (5)
  - Off label use [Unknown]
  - Gastrooesophageal reflux disease [Unknown]
  - Incorrect drug administration duration [Unknown]
  - Condition aggravated [Unknown]
  - Incorrect dose administered [Unknown]
